FAERS Safety Report 8239725-9 (Version None)
Quarter: 2012Q1

REPORT INFORMATION
  Report Type: 
  Country: None (occurrence: None)
  Receive Date: 20120327
  Receipt Date: 20120327
  Transmission Date: 20120608
  Serious: Yes (Hospitalization)
  Sender: FDA-Public Use
  Company Number: None

PATIENT
  Sex: Male
  Weight: 119 kg

DRUGS (6)
  1. BACTRIM DS [Concomitant]
  2. PENTOSTATIN [Suspect]
     Dosage: 9.36 MG
  3. CYCLOPHOSPHAMIDE [Suspect]
     Dosage: 1404 MG
  4. RITUXIMAB (MOAB C2B8 ANTI CD20, CHIMERIC) [Suspect]
     Dosage: 878 MG
  5. ACYCLOVIR [Concomitant]
  6. CAMPATH [Suspect]
     Dosage: 360 MG

REACTIONS (14)
  - ACIDOSIS [None]
  - RESPIRATORY SYNCYTIAL VIRUS TEST POSITIVE [None]
  - ACUTE RESPIRATORY DISTRESS SYNDROME [None]
  - HYPOXIA [None]
  - OROPHARYNGEAL PAIN [None]
  - CARDIO-RESPIRATORY ARREST [None]
  - INFUSION RELATED REACTION [None]
  - SEPTIC SHOCK [None]
  - NASOPHARYNGITIS [None]
  - PYREXIA [None]
  - DYSPNOEA [None]
  - HYPOTENSION [None]
  - PULMONARY EMBOLISM [None]
  - LUNG INFILTRATION [None]
